FAERS Safety Report 12831301 (Version 1)
Quarter: 2016Q4

REPORT INFORMATION
  Report Type: Report from Study
  Country: None (occurrence: US)
  Receive Date: 20161008
  Receipt Date: 20161008
  Transmission Date: 20170207
  Serious: Yes (Hospitalization)
  Sender: FDA-Public Use
  Company Number: US-ABBVIE-16K-163-1742253-00

PATIENT
  Age: 52 Year
  Sex: Male
  Weight: 102.15 kg

DRUGS (3)
  1. HUMIRA [Suspect]
     Active Substance: ADALIMUMAB
     Route: 058
     Dates: start: 201606, end: 20160903
  2. HUMIRA [Suspect]
     Active Substance: ADALIMUMAB
     Indication: CROHN^S DISEASE
     Route: 058
     Dates: start: 2015, end: 201605
  3. METHOTREXATE. [Concomitant]
     Active Substance: METHOTREXATE
     Indication: CROHN^S DISEASE

REACTIONS (5)
  - Weight decreased [Recovered/Resolved]
  - Pneumonia cryptococcal [Recovering/Resolving]
  - Immunodeficiency [Unknown]
  - Pulmonary mass [Recovering/Resolving]
  - Asthenia [Recovering/Resolving]

NARRATIVE: CASE EVENT DATE: 20160908
